FAERS Safety Report 4788557-2 (Version None)
Quarter: 2005Q4

REPORT INFORMATION
  Report Type: 
  Country: None (occurrence: None)
  Receive Date: 20051005
  Receipt Date: 20051005
  Transmission Date: 20060501
  Serious: Yes (Hospitalization)
  Sender: FDA-Public Use
  Company Number: None

PATIENT
  Age: 25 Year
  Sex: Female

DRUGS (1)
  1. TYLENOL (CAPLET) [Suspect]
     Indication: SUICIDE ATTEMPT
     Dosage: 1500 MG PO
     Route: 048
     Dates: start: 20050312

REACTIONS (7)
  - ALANINE AMINOTRANSFERASE INCREASED [None]
  - ASPARTATE AMINOTRANSFERASE INCREASED [None]
  - HEPATIC ENZYME INCREASED [None]
  - INTENTIONAL DRUG MISUSE [None]
  - NAUSEA [None]
  - OVERDOSE [None]
  - VOMITING [None]
